FAERS Safety Report 11720330 (Version 1)
Quarter: 2015Q4

REPORT INFORMATION
  Report Type: Report from Study
  Country: CA (occurrence: CA)
  Receive Date: 20151110
  Receipt Date: 20151110
  Transmission Date: 20160304
  Serious: Yes (Other)
  Sender: FDA-Public Use
  Company Number: CA-REGENERON PHARMACEUTICALS, INC.-2015-13622

PATIENT

DRUGS (1)
  1. EYLEA [Suspect]
     Active Substance: AFLIBERCEPT
     Indication: DIABETIC RETINAL OEDEMA
     Dosage: UNK
     Route: 031
     Dates: start: 20151010

REACTIONS (5)
  - Ocular hyperaemia [Recovered/Resolved]
  - Photophobia [Unknown]
  - Feeling abnormal [Unknown]
  - Eye pain [Unknown]
  - Eye disorder [Unknown]

NARRATIVE: CASE EVENT DATE: 20151010
